FAERS Safety Report 9373578 (Version 1)
Quarter: 2013Q2

REPORT INFORMATION
  Report Type: Spontaneous
  Country: DE (occurrence: DE)
  Receive Date: 20130627
  Receipt Date: 20130627
  Transmission Date: 20140414
  Serious: Yes (Other)
  Sender: FDA-Public Use
  Company Number: PHHY2013DE064206

PATIENT
  Sex: Male

DRUGS (2)
  1. SERTRALINE [Suspect]
     Dosage: MATERNAL DOSE OF 25 MG/DAY
     Route: 064
  2. SERTRALINE [Suspect]
     Dosage: MATERNAL DOSE OF 150 MG/DAY

REACTIONS (15)
  - Premature baby [Unknown]
  - Hyperthermia [Recovered/Resolved]
  - Frequent bowel movements [Recovered/Resolved]
  - General physical health deterioration [Recovered/Resolved]
  - Myoclonus [Recovered/Resolved]
  - Chills [Recovered/Resolved]
  - Poor sucking reflex [Recovered/Resolved]
  - Hypertonia neonatal [Recovered/Resolved]
  - Tremor [Recovered/Resolved]
  - Irritability [Recovered/Resolved]
  - Crying [Recovered/Resolved]
  - Neonatal respiratory distress syndrome [Recovered/Resolved]
  - Drug withdrawal syndrome neonatal [Unknown]
  - Foetal exposure during pregnancy [Unknown]
  - Exposure during breast feeding [Unknown]
